FAERS Safety Report 17734049 (Version 1)
Quarter: 2020Q2

REPORT INFORMATION
  Report Type: Spontaneous
  Country: US (occurrence: US)
  Receive Date: 20200501
  Receipt Date: 20200501
  Transmission Date: 20200714
  Serious: No
  Sender: FDA-Public Use
  Company Number: US-PFIZER INC-2019406323

PATIENT
  Age: 21 Year
  Sex: Male

DRUGS (5)
  1. XELJANZ [Suspect]
     Active Substance: TOFACITINIB CITRATE
     Dosage: 5 MG, 2X/DAY
  2. XELJANZ [Suspect]
     Active Substance: TOFACITINIB CITRATE
     Dosage: 15 MG, DAILY (10 MG Q AM AND 5 MG Q HS (15MG TOTAL DAILY))
  3. XELJANZ [Suspect]
     Active Substance: TOFACITINIB CITRATE
     Indication: ALOPECIA UNIVERSALIS
     Dosage: 10 MG, DAILY
  4. XELJANZ [Suspect]
     Active Substance: TOFACITINIB CITRATE
     Dosage: 15 MG, DAILY (10MG EVERY MORNING AND 5MG BEFORE BEDTIME)
     Route: 048
  5. XELJANZ [Suspect]
     Active Substance: TOFACITINIB CITRATE
     Dosage: 15 MG, DAILY (10MG IN THE MORNING 5MG AT NIGHT)

REACTIONS (3)
  - Drug ineffective for unapproved indication [Unknown]
  - Off label use [Unknown]
  - Product use issue [Unknown]
